FAERS Safety Report 5104891-0 (Version None)
Quarter: 2006Q3

REPORT INFORMATION
  Report Type: 
  Country: None (occurrence: None)
  Receive Date: 20060911
  Receipt Date: 20060911
  Transmission Date: 20061208
  Serious: Yes (Hospitalization)
  Sender: FDA-Public Use
  Company Number: None

PATIENT
  Age: 40 Year
  Sex: Female
  Weight: 34.927 kg

DRUGS (2)
  1. DAPSONE [Suspect]
     Indication: ANTIBIOTIC PROPHYLAXIS
     Dosage: 100 MG   ONCE DAILY   PO
     Route: 048
     Dates: start: 20020402, end: 20060528
  2. DAPSONE [Suspect]
     Indication: PNEUMOCYSTIS JIROVECI PNEUMONIA
     Dosage: 100 MG   ONCE DAILY   PO
     Route: 048
     Dates: start: 20020402, end: 20060528

REACTIONS (4)
  - DEHYDRATION [None]
  - HAEMOLYSIS [None]
  - IMPAIRED SELF-CARE [None]
  - PANCYTOPENIA [None]
